FAERS Safety Report 16458380 (Version 4)
Quarter: 2019Q3

REPORT INFORMATION
  Report Type: Spontaneous
  Country: US (occurrence: US)
  Receive Date: 20190620
  Receipt Date: 20190911
  Transmission Date: 20191004
  Serious: Yes (Hospitalization, Other)
  Sender: FDA-Public Use
  Company Number: US-GW PHARMA-201906USGW2033

PATIENT

DRUGS (27)
  1. CARNITOR SF [Concomitant]
     Active Substance: LEVOCARNITINE
     Indication: KETOGENIC DIET
     Dosage: 3.3 MILLILITER, QD (3.3 ML IN THE FEEDING TUBE ONCE DAILY)
  2. MOTRIN [Concomitant]
     Active Substance: IBUPROFEN
     Indication: PAIN
     Dosage: 400 MILLIGRAM, QD (100 MG IN FEEDING TUBE EVERY 6 HOURS)
  3. ATROVENT [Concomitant]
     Active Substance: IPRATROPIUM BROMIDE
     Indication: WHEEZING
     Dosage: 2.5 MILLILITER, Q6H (INHALE 2.5 ML BY NEBULIZATION EVERY 6 HOURS)
  4. LIORESAL [Concomitant]
     Active Substance: BACLOFEN
     Indication: KETOGENIC DIET
     Dosage: 1 MILLILITER, TID (PLACE 1 ML IN THE FEEDING TUBE THREE TIMES A DAY)
  5. VIRT PHOS NEUTRAL [Concomitant]
     Indication: PRODUCT USED FOR UNKNOWN INDICATION
     Dosage: 500 MILLIGRAM, BID (PLACE 2 TABS IN THE FEEDING TUBE TWICE DAILY)
  6. BANZEL [Concomitant]
     Active Substance: RUFINAMIDE
     Dosage: 1100 MILLIGRAM, QD (400 MG IN FEEDING TUBE EACH EVENING, 2 TABS FOR NIGHT AND 1.5 TABS IN THE AM)
     Route: 065
  7. ZOFRAN [Concomitant]
     Active Substance: ONDANSETRON HYDROCHLORIDE
     Indication: NAUSEA
     Dosage: 6 MILLIGRAM, QD (0.5 TABS IN THE G TUBE EVERY 8 HOURS)
  8. MIRALAX [Concomitant]
     Active Substance: POLYETHYLENE GLYCOL 3350
     Indication: DIARRHOEA
     Dosage: 8.5 GRAM, QD (MIX 8.5 G IN WATER OR JUICE ND PLAACE IN THE FEEDING TUBE)
  9. EPIDIOLEX [Suspect]
     Active Substance: CANNABIDIOL
     Indication: LENNOX-GASTAUT SYNDROME
     Dosage: 14.14 MG/KG, 140 MILLIGRAM, BID
     Dates: start: 2019, end: 2019
  10. EPIDIOLEX [Suspect]
     Active Substance: CANNABIDIOL
     Dosage: 18.18 MG/KG,180 MILLIGRAM, BID
     Dates: start: 201902
  11. VIMPAT [Concomitant]
     Active Substance: LACOSAMIDE
     Indication: PRODUCT USED FOR UNKNOWN INDICATION
     Dosage: 175 MILLIGRAM, QD (1.5 TABS IN THE FEEDING TUBE EACH MORNING AND 2 TBS IN EVENING)
     Route: 065
  12. DUONEB [Concomitant]
     Active Substance: ALBUTEROL SULFATE\IPRATROPIUM BROMIDE
     Indication: WHEEZING
     Dosage: 3 MILLILITER, QID
     Route: 065
  13. FLOVENT HFA [Concomitant]
     Active Substance: FLUTICASONE PROPIONATE
     Indication: PRODUCT USED FOR UNKNOWN INDICATION
     Dosage: 2 ACTUATION, BID (INHALE 2 PUFFS BY MOUTH TWICE DAILY)
     Route: 065
  14. ZANTAC [Concomitant]
     Active Substance: RANITIDINE HYDROCHLORIDE
     Indication: PRODUCT USED FOR UNKNOWN INDICATION
     Dosage: 37.5 MILLIGRAM, BID (0.5 TABS BY MOUTH TWICE DAILY)
     Route: 048
  15. TYLENOL [Concomitant]
     Active Substance: ACETAMINOPHEN
     Indication: PRODUCT USED FOR UNKNOWN INDICATION
     Dosage: 650 MILLIGRAM, QD (0.5 TABS IN FEEDING TUBE EVERY 6 HOURS)
     Route: 065
  16. CHILDREN MULTIVITAMINS [Concomitant]
     Indication: PRODUCT USED FOR UNKNOWN INDICATION
     Dosage: 60 MILLIGRAM, QD (1 TABLET BY MOUTH ONCE DAILY)
     Route: 048
  17. VALIUM [Concomitant]
     Active Substance: DIAZEPAM
     Indication: PRODUCT USED FOR UNKNOWN INDICATION
     Dosage: 1.5 MILLIGRAM, QD (0.25 TABS IN FEEDING TUBE EVERY 8 HOURS)
  18. ZOFRAN [Concomitant]
     Active Substance: ONDANSETRON HYDROCHLORIDE
     Indication: VOMITING
  19. ONFI [Concomitant]
     Active Substance: CLOBAZAM
     Dosage: 5 MILLIGRAM, BID (0.5 TAB TWICE DAILY)
     Route: 065
  20. BANZEL [Concomitant]
     Active Substance: RUFINAMIDE
     Indication: KETOGENIC DIET
     Dosage: 700 MILLIGRAM, QD (1.5 TABS IN THE FEEDING TUBE EACH MORNING AND 2 TABS QPM)
  21. NEXIUM [Concomitant]
     Active Substance: ESOMEPRAZOLE MAGNESIUM
     Indication: PRODUCT USED FOR UNKNOWN INDICATION
     Dosage: 10 MILLIGRAM, QD (PLACE 1 EACH IN FEEDING TUBE EVERY MORNING BEFORE BREAKFAST)
  22. SENOKOT [Concomitant]
     Active Substance: SENNOSIDES
     Indication: CONSTIPATION
     Dosage: 4.3 MILLIGRAM, BID 0.5 TABS IN FEEDING TUBE AS NEEDED)
  23. CALCIUM 600 + D [Concomitant]
     Active Substance: CALCIUM\VITAMIN D
     Indication: KETOGENIC DIET
     Dosage: 1700 MILLIGRAM, QD (PLACE 2 TABS IN FEEDING TUBE ONCE DAILY)
  24. DIASTAT [DIAZEPAM] [Concomitant]
     Indication: SEIZURE
     Dosage: 7.5 MILLIGRAM, Q12H (7.5 MG RECTALLY)
     Route: 054
  25. ONFI [Concomitant]
     Active Substance: CLOBAZAM
     Indication: PRODUCT USED FOR UNKNOWN INDICATION
     Dosage: 5 MILLIGRAM, QD (PLACE 0.5 TABS IN FEEDING TUBE THREE TIMES A DAY FOR 1 MONTH)
  26. CREON [Concomitant]
     Active Substance: PANCRELIPASE AMYLASE\PANCRELIPASE LIPASE\PANCRELIPASE PROTEASE
     Indication: PRODUCT USED FOR UNKNOWN INDICATION
     Dosage: 6000 INTERNATIONAL UNIT, TID (1 CAPSULE BY MOUTH THREE TIMES DAILY WITH MEALS)
     Route: 048
  27. MOTRIN [Concomitant]
     Active Substance: IBUPROFEN
     Indication: PYREXIA

REACTIONS (3)
  - Constipation [Recovered/Resolved]
  - Abdominal pain upper [Recovered/Resolved]
  - Product use issue [Unknown]

NARRATIVE: CASE EVENT DATE: 2019
